FAERS Safety Report 18422373 (Version 2)
Quarter: 2021Q1

REPORT INFORMATION
  Report Type: Spontaneous
  Country: US (occurrence: US)
  Receive Date: 20201023
  Receipt Date: 20210125
  Transmission Date: 20210419
  Serious: Yes (Other)
  Sender: FDA-Public Use
  Company Number: US-PURDUE-USA-2020-0170794

PATIENT
  Sex: Male
  Weight: 99.6 kg

DRUGS (1)
  1. HYDROMORPHONE TABLETS [Suspect]
     Active Substance: HYDROMORPHONE
     Indication: PRODUCT USED FOR UNKNOWN INDICATION
     Dosage: UNK
     Route: 048

REACTIONS (4)
  - Brain neoplasm [Unknown]
  - Drug dependence [Unknown]
  - Generalised tonic-clonic seizure [Not Recovered/Not Resolved]
  - Cerebrovascular accident [Unknown]
